FAERS Safety Report 9343035 (Version 3)
Quarter: 2013Q4

REPORT INFORMATION
  Report Type: Report from Study
  Country: US (occurrence: US)
  Receive Date: 20130611
  Receipt Date: 20131127
  Transmission Date: 20140711
  Serious: Yes (Other)
  Sender: FDA-Public Use
  Company Number: US-ALEXION-A201301306

PATIENT
  Age: 49 Year
  Sex: Female
  Weight: 60.8 kg

DRUGS (8)
  1. SOLIRIS [Suspect]
     Indication: PAROXYSMAL NOCTURNAL HAEMOGLOBINURIA
     Dosage: UNK
     Route: 042
     Dates: start: 200704
  2. SOLIRIS [Suspect]
     Dosage: 900 MG, Q2W
     Route: 042
  3. DESFERAL [Concomitant]
     Dosage: UNK
     Dates: end: 2013
  4. EXJADE [Concomitant]
     Indication: HAEMOCHROMATOSIS
     Dosage: UNK
  5. RECLAST [Concomitant]
     Indication: OSTEOPOROSIS
     Dosage: UNK, TWO X PER YEAR
  6. NEXIUM [Concomitant]
     Dosage: UNK
  7. FOLIC ACID [Concomitant]
     Dosage: UNK
  8. CALCIUM + VITAMIN D [Concomitant]
     Dosage: UNK

REACTIONS (5)
  - Rib fracture [Unknown]
  - Contusion [Unknown]
  - Fall [Recovered/Resolved]
  - Breast pain [Unknown]
  - Mastitis [Recovered/Resolved]
